FAERS Safety Report 21093372 (Version 1)
Quarter: 2022Q3

REPORT INFORMATION
  Report Type: Spontaneous
  Country: CA (occurrence: CA)
  Receive Date: 20220718
  Receipt Date: 20220718
  Transmission Date: 20221026
  Serious: Yes (Other)
  Sender: FDA-Public Use
  Company Number: None

PATIENT
  Age: 58 Year
  Sex: Female

DRUGS (5)
  1. ALLOPURINOL [Suspect]
     Active Substance: ALLOPURINOL
     Indication: Gout
     Route: 065
  2. SULFASALAZINE [Concomitant]
     Active Substance: SULFASALAZINE
     Indication: Rheumatoid arthritis
     Route: 065
  3. CEFTRIAXONE [Concomitant]
     Active Substance: CEFTRIAXONE
     Indication: Arthritis bacterial
     Route: 065
  4. ERTAPENEM [Concomitant]
     Active Substance: ERTAPENEM
     Indication: Arthritis bacterial
     Route: 065
  5. PENICILLIN V [Concomitant]
     Active Substance: PENICILLIN V
     Indication: Arthritis bacterial
     Route: 065

REACTIONS (2)
  - Lichenoid keratosis [Recovering/Resolving]
  - Granulomatous dermatitis [Recovering/Resolving]
